FAERS Safety Report 5055943-5 (Version None)
Quarter: 2006Q3

REPORT INFORMATION
  Report Type: 
  Country: None (occurrence: None)
  Receive Date: 20060720
  Receipt Date: 20060710
  Transmission Date: 20061208
  Serious: Yes (Death, Other)
  Sender: FDA-Public Use
  Company Number: PHBS2006FI10337

PATIENT
  Age: 39 Year
  Sex: Male

DRUGS (5)
  1. METHYLPREDNISOLONE [Suspect]
     Indication: RENAL TRANSPLANT
  2. AZATHIOPRINE [Suspect]
     Indication: RENAL TRANSPLANT
  3. TACROLIMUS [Suspect]
     Indication: RENAL TRANSPLANT
     Dates: start: 20010401
  4. MYCOPHENOLATE MOFETIL [Suspect]
     Indication: RENAL TRANSPLANT
     Dates: start: 20010401
  5. CYCLOSPORINE [Suspect]
     Indication: RENAL TRANSPLANT
     Dosage: UNK, UNK
     Dates: end: 20000101

REACTIONS (20)
  - BACK PAIN [None]
  - BLADDER DISORDER [None]
  - CHRONIC ALLOGRAFT NEPHROPATHY [None]
  - DIALYSIS [None]
  - DISEASE PROGRESSION [None]
  - HAEMATOMA [None]
  - INTRA-ABDOMINAL HAEMORRHAGE [None]
  - KIDNEY TRANSPLANT REJECTION [None]
  - LYMPHADENOPATHY [None]
  - METASTASES TO BONE [None]
  - METASTASES TO LIVER [None]
  - METASTASES TO SPLEEN [None]
  - METASTASIS [None]
  - MUSCULAR WEAKNESS [None]
  - PROSTATE CANCER METASTATIC [None]
  - RENAL FAILURE [None]
  - RENAL TRANSPLANT [None]
  - SMALL CELL CARCINOMA [None]
  - SPLENIC RUPTURE [None]
  - URETHRAL HAEMORRHAGE [None]
